FAERS Safety Report 9311961 (Version 1)
Quarter: 2013Q2

REPORT INFORMATION
  Report Type: Report from Study
  Country: BE (occurrence: BE)
  Receive Date: 20130528
  Receipt Date: 20130528
  Transmission Date: 20140414
  Serious: Yes (Hospitalization)
  Sender: FDA-Public Use
  Company Number: PHHY2013BE053091

PATIENT
  Age: 76 Year
  Sex: Male

DRUGS (2)
  1. ACLASTA [Suspect]
     Indication: OSTEOPOROSIS
     Dosage: 5 MG, (ONCE)
     Route: 042
     Dates: start: 20130509
  2. L-THYROXINE [Concomitant]
     Indication: HYPOTHYROIDISM
     Dosage: UNK

REACTIONS (7)
  - Sinus bradycardia [Recovered/Resolved]
  - Ventricular extrasystoles [Unknown]
  - Somnolence [Unknown]
  - Headache [Recovering/Resolving]
  - Ulcerative keratitis [Recovered/Resolved]
  - Conjunctivitis [Recovered/Resolved]
  - Tearfulness [Unknown]
